FAERS Safety Report 25738238 (Version 1)
Quarter: 2025Q3

REPORT INFORMATION
  Report Type: Spontaneous
  Country: EU (occurrence: EU)
  Receive Date: 20250829
  Receipt Date: 20250829
  Transmission Date: 20251021
  Serious: No
  Sender: ALKEM
  Company Number: None

PATIENT
  Age: 34 Year
  Sex: Female
  Weight: 79 kg

DRUGS (2)
  1. PREGABALIN [Interacting]
     Active Substance: PREGABALIN
     Indication: Neuralgia
     Dosage: 600 MILLIGRAM, QD (EVERY 1 DAY)
     Route: 048
     Dates: start: 20240216
  2. ARTICAINE HYDROCHLORIDE [Interacting]
     Active Substance: ARTICAINE HYDROCHLORIDE
     Indication: Dental care
     Route: 004
     Dates: start: 20240714, end: 20240714

REACTIONS (1)
  - Drug interaction [Unknown]

NARRATIVE: CASE EVENT DATE: 20240714
